FAERS Safety Report 24828162 (Version 1)
Quarter: 2025Q1

REPORT INFORMATION
  Report Type: Report from Study
  Country: ES (occurrence: ES)
  Receive Date: 20250109
  Receipt Date: 20250109
  Transmission Date: 20250409
  Serious: Yes (Hospitalization, Other)
  Sender: ABBVIE
  Company Number: ES-ABBVIE-6053669

PATIENT
  Age: 65 Year
  Sex: Male

DRUGS (2)
  1. CARBIDOPA\LEVODOPA [Suspect]
     Active Substance: CARBIDOPA\LEVODOPA
     Indication: Parkinson^s disease
     Route: 058
     Dates: start: 20241211
  2. Kefloridina [Concomitant]
     Indication: Erythema
     Dosage: KEFLORIDINA FORTE 500
     Route: 048
     Dates: start: 20241221

REACTIONS (18)
  - Pyrexia [Unknown]
  - Head discomfort [Not Recovered/Not Resolved]
  - Musculoskeletal stiffness [Recovering/Resolving]
  - Therapeutic product effect decreased [Unknown]
  - Freezing phenomenon [Recovering/Resolving]
  - Puncture site haematoma [Recovered/Resolved]
  - Benign prostatic hyperplasia [Unknown]
  - Vision blurred [Not Recovered/Not Resolved]
  - Unevaluable event [Unknown]
  - Puncture site inflammation [Recovered/Resolved]
  - Headache [Not Recovered/Not Resolved]
  - Hypertension [Unknown]
  - Nervousness [Not Recovered/Not Resolved]
  - Erythema [Recovering/Resolving]
  - Puncture site infection [Recovered/Resolved]
  - Seizure [Unknown]
  - Catheter site pain [Unknown]
  - Catheter site erythema [Unknown]

NARRATIVE: CASE EVENT DATE: 20241201
